FAERS Safety Report 12374876 (Version 1)
Quarter: 2016Q2

REPORT INFORMATION
  Report Type: Spontaneous
  Country: US (occurrence: US)
  Receive Date: 20160517
  Receipt Date: 20160517
  Transmission Date: 20160815
  Serious: Yes (Other)
  Sender: FDA-Public Use
  Company Number: US-ACCORD-040447

PATIENT
  Age: 19 Month
  Sex: Male

DRUGS (3)
  1. CISPLATIN. [Suspect]
     Active Substance: CISPLATIN
     Indication: CHEMOTHERAPY
     Dosage: ADMINISTERED OVER 4 MONTHS?FOUR CYCLES
  2. VINCRISTINE [Suspect]
     Active Substance: VINCRISTINE
     Indication: CHEMOTHERAPY
     Dosage: ADMINISTERED OVER 4 MONTHS?FOUR CYCLES
  3. FLUOROURACIL. [Suspect]
     Active Substance: FLUOROURACIL
     Indication: CHEMOTHERAPY
     Dosage: FOUR CYCLES ADMINISTERED OVER 4 MONTHS

REACTIONS (11)
  - Anaemia [Unknown]
  - Thrombocytopenia [Unknown]
  - Femur fracture [Unknown]
  - Febrile neutropenia [Unknown]
  - Dermatitis diaper [Unknown]
  - Hyperglycaemia [Unknown]
  - Staphylococcal sepsis [Unknown]
  - Hypercalcaemia [Unknown]
  - Osteopenia [Unknown]
  - Device related infection [Unknown]
  - Metabolic acidosis [Unknown]
